FAERS Safety Report 4721550-4 (Version None)
Quarter: 2005Q3

REPORT INFORMATION
  Report Type: 
  Country: None (occurrence: None)
  Receive Date: 20050721
  Receipt Date: 20041118
  Transmission Date: 20060218
  Serious: No
  Sender: FDA-Public Use
  Company Number: US-BRISTOL-MYERS SQUIBB COMPANY-12769790

PATIENT
  Age: 76 Year
  Sex: Female
  Weight: 109 kg

DRUGS (2)
  1. COUMADIN [Suspect]
     Indication: ATRIAL FIBRILLATION
     Route: 048
     Dates: start: 20040101
  2. OTHERS (NOS) [Concomitant]
     Indication: CARDIAC DISORDER

REACTIONS (2)
  - HYPOAESTHESIA ORAL [None]
  - LIP EXFOLIATION [None]
